FAERS Safety Report 10296658 (Version 1)
Quarter: 2014Q3

REPORT INFORMATION
  Report Type: Spontaneous
  Country: US (occurrence: US)
  Receive Date: 20140711
  Receipt Date: 20140711
  Transmission Date: 20150326
  Serious: No
  Sender: FDA-Public Use
  Company Number: US-PFIZER INC-2014190602

PATIENT
  Age: 49 Year
  Sex: Female
  Weight: 66.21 kg

DRUGS (6)
  1. NEURONTIN [Suspect]
     Active Substance: GABAPENTIN
     Dosage: 400 MG, 4X/DAY
     Route: 048
     Dates: start: 2011
  2. NEURONTIN [Suspect]
     Active Substance: GABAPENTIN
     Indication: DIABETIC NEUROPATHY
     Dosage: 400 MG, 4X/DAY
     Route: 048
     Dates: start: 2004, end: 2011
  3. SOMA [Concomitant]
     Active Substance: CARISOPRODOL
     Dosage: UNK
  4. LIPITOR [Concomitant]
     Active Substance: ATORVASTATIN CALCIUM
     Dosage: UNK
  5. FIORCET [Concomitant]
     Indication: HEADACHE
     Dosage: UNK, OCCASIONALLY
  6. XANAX [Concomitant]
     Active Substance: ALPRAZOLAM
     Dosage: UNK

REACTIONS (1)
  - Pain [Unknown]

NARRATIVE: CASE EVENT DATE: 2011
